FAERS Safety Report 23563975 (Version 1)
Quarter: 2024Q1

REPORT INFORMATION
  Report Type: Spontaneous
  Country: FR (occurrence: FR)
  Receive Date: 20240226
  Receipt Date: 20240226
  Transmission Date: 20240409
  Serious: Yes (Hospitalization, Other)
  Sender: FDA-Public Use
  Company Number: FR-AFSSAPS-LY2024000239

PATIENT
  Age: 37 Year
  Sex: Male
  Weight: 87.5 kg

DRUGS (3)
  1. THIOCOLCHICOSIDE [Suspect]
     Active Substance: THIOCOLCHICOSIDE
     Indication: Influenza like illness
     Dosage: UNK
     Route: 048
     Dates: start: 20240125, end: 20240128
  2. NAPROXEN [Suspect]
     Active Substance: NAPROXEN
     Indication: Influenza like illness
     Dosage: UNK
     Route: 048
     Dates: start: 20240125, end: 20240128
  3. ACETAMINOPHEN [Concomitant]
     Active Substance: ACETAMINOPHEN
     Indication: Product used for unknown indication
     Dosage: UNK
     Route: 048
     Dates: start: 20240124

REACTIONS (1)
  - Rhabdomyolysis [Recovering/Resolving]

NARRATIVE: CASE EVENT DATE: 20240127
